FAERS Safety Report 4771801-5 (Version None)
Quarter: 2005Q3

REPORT INFORMATION
  Report Type: 
  Country: None (occurrence: None)
  Receive Date: 20050916
  Receipt Date: 20050912
  Transmission Date: 20060218
  Serious: Yes (Hospitalization)
  Sender: FDA-Public Use
  Company Number: US-MERCK-0509USA01692

PATIENT
  Sex: Female

DRUGS (4)
  1. VIOXX [Suspect]
     Route: 048
     Dates: start: 20000101, end: 20040329
  2. NORVASC [Concomitant]
     Indication: BLOOD PRESSURE
     Route: 065
     Dates: start: 20030101
  3. ATENOLOL [Concomitant]
     Indication: BLOOD PRESSURE
     Route: 065
     Dates: start: 20030101
  4. PRINZIDE [Concomitant]
     Indication: BLOOD PRESSURE
     Route: 065
     Dates: start: 20030101

REACTIONS (2)
  - BLOOD PRESSURE INCREASED [None]
  - CARDIAC DISORDER [None]
